FAERS Safety Report 4619086-4 (Version None)
Quarter: 2005Q1

REPORT INFORMATION
  Report Type: 
  Country: None (occurrence: None)
  Receive Date: 20050318
  Receipt Date: 20050318
  Transmission Date: 20050727
  Serious: Yes (Hospitalization)
  Sender: FDA-Public Use
  Company Number: None

PATIENT
  Sex: Female
  Weight: 63.5036 kg

DRUGS (2)
  1. ULTRACET [Suspect]
     Indication: PAIN
     Dosage: PO
     Route: 048
     Dates: start: 20041207
  2. BELLADONA/PHENOBARBITAL [Concomitant]

REACTIONS (3)
  - HEADACHE [None]
  - TREMOR [None]
  - VOMITING [None]
